FAERS Safety Report 15757518 (Version 2)
Quarter: 2020Q1

REPORT INFORMATION
  Report Type: Spontaneous
  Country: US (occurrence: US)
  Receive Date: 20181224
  Receipt Date: 20200311
  Transmission Date: 20200409
  Serious: No
  Sender: FDA-Public Use
  Company Number: US-TEIKOKU PHARMA USA-TPU2018-00868

PATIENT
  Sex: Female
  Weight: 61.29 kg

DRUGS (5)
  1. LIDODERM [Suspect]
     Active Substance: LIDOCAINE
     Indication: PAIN
  2. LIDOCAINE PATCH [Suspect]
     Active Substance: LIDOCAINE
     Indication: PRODUCT USED FOR UNKNOWN INDICATION
  3. OPIATE PILLS [Concomitant]
     Indication: PAIN
  4. LIDODERM [Suspect]
     Active Substance: LIDOCAINE
     Indication: SPINAL STENOSIS
     Dosage: APPLY THREE PATCHES AT NIGHT TO BACK, AND OCCASIONALLY TO WRIST
     Route: 061
     Dates: start: 2010
  5. TOO MANY OTHER MEDICATIONS [Concomitant]

REACTIONS (1)
  - Drug ineffective [Unknown]
